FAERS Safety Report 8379471-4 (Version None)
Quarter: 2012Q2

REPORT INFORMATION
  Report Type: 
  Country: None (occurrence: None)
  Receive Date: 20120523
  Receipt Date: 20120508
  Transmission Date: 20120825
  Serious: Yes (Hospitalization)
  Sender: FDA-Public Use
  Company Number: US-JNJFOC-20120508292

PATIENT
  Sex: Female

DRUGS (21)
  1. LORAZEPAM [Concomitant]
     Dosage: AS NEEDED
     Route: 048
  2. CALCIUM AND VITAMIN D [Concomitant]
     Route: 048
  3. ESTRADIOL [Concomitant]
     Route: 048
  4. CELEBREX [Suspect]
     Indication: PRODUCT USED FOR UNKNOWN INDICATION
     Route: 065
  5. ASCORBIC ACID [Concomitant]
     Route: 048
  6. GLUCOSAMINE [Concomitant]
     Route: 065
  7. UNKNOWN MEDICATION [Concomitant]
     Route: 065
  8. OMNICEF [Concomitant]
     Indication: OROPHARYNGEAL PAIN
     Route: 048
  9. OMEPRAZOLE [Concomitant]
     Route: 048
  10. MEDROXYPROGESTERONE [Concomitant]
     Route: 048
  11. COLACE [Concomitant]
     Dosage: 2AM 3PM
     Route: 048
  12. OMNICEF [Concomitant]
     Indication: SINUS DISORDER
     Route: 048
  13. CYCLOBENZAPRINE [Concomitant]
     Route: 048
  14. MULTI-VITAMINS [Concomitant]
     Route: 048
  15. ACARBOSE [Concomitant]
     Route: 048
  16. ULTRAM [Concomitant]
     Dosage: EVERY FOUR TO SIX HOURS
     Route: 048
  17. FENTANYL-100 [Suspect]
     Indication: SURGERY
     Route: 062
  18. FENTANYL CITRATE [Suspect]
     Indication: PRODUCT USED FOR UNKNOWN INDICATION
     Route: 042
  19. UNKNOWN MEDICATION [Concomitant]
     Dosage: 2AM 3PM
     Route: 048
  20. NIFEDIPINE [Concomitant]
     Route: 048
  21. RANITIDINE [Concomitant]
     Route: 048

REACTIONS (2)
  - PANIC ATTACK [None]
  - INSOMNIA [None]
